FAERS Safety Report 15260158 (Version 1)
Quarter: 2018Q3

REPORT INFORMATION
  Report Type: Report from Study
  Country: US (occurrence: US)
  Receive Date: 20180809
  Receipt Date: 20180809
  Transmission Date: 20181010
  Serious: Yes (Other)
  Sender: FDA-Public Use
  Company Number: US-PFIZER INC-2018076707

PATIENT
  Age: 85 Year
  Sex: Female

DRUGS (1)
  1. IBRANCE [Suspect]
     Active Substance: PALBOCICLIB
     Indication: BREAST CANCER METASTATIC
     Dosage: 100 MG, CYCLIC (ONCE DAILY/3 WEEKS ON, 1 WEEK OFF)
     Route: 048
     Dates: start: 20180207

REACTIONS (7)
  - Bone marrow failure [Unknown]
  - Weight increased [Unknown]
  - Rash [Unknown]
  - Neoplasm progression [Unknown]
  - Drug dose omission [Unknown]
  - Pruritus [Not Recovered/Not Resolved]
  - Constipation [Recovered/Resolved]

NARRATIVE: CASE EVENT DATE: 2018
